FAERS Safety Report 12388046 (Version 1)
Quarter: 2016Q2

REPORT INFORMATION
  Report Type: Spontaneous
  Country: US (occurrence: None)
  Receive Date: 20160519
  Receipt Date: 20160519
  Transmission Date: 20160815
  Serious: Yes (Other)
  Sender: FDA-Public Use
  Company Number: None

PATIENT
  Age: 61 Year
  Sex: Male

DRUGS (1)
  1. SUTENT [Suspect]
     Active Substance: SUNITINIB MALATE
     Indication: RENAL NEOPLASM
     Route: 048
     Dates: start: 201506

REACTIONS (4)
  - Fatigue [None]
  - Diarrhoea [None]
  - Dysgeusia [None]
  - Skin exfoliation [None]

NARRATIVE: CASE EVENT DATE: 20160430
